FAERS Safety Report 9341142 (Version 1)
Quarter: 2013Q2

REPORT INFORMATION
  Report Type: Spontaneous
  Country: FR (occurrence: FR)
  Receive Date: 20130611
  Receipt Date: 20130611
  Transmission Date: 20140414
  Serious: Yes (Life-Threatening, Hospitalization)
  Sender: FDA-Public Use
  Company Number: FR-ASTRAZENECA-2013SE41523

PATIENT
  Age: 3452 Week
  Sex: Male

DRUGS (10)
  1. MOPRAL [Suspect]
     Route: 048
     Dates: end: 20130214
  2. METFORMINE [Suspect]
     Route: 048
     Dates: end: 20130214
  3. PARACETAMOL [Suspect]
     Route: 042
     Dates: start: 20130214, end: 20130221
  4. DEROXAT [Suspect]
     Route: 048
     Dates: end: 20130214
  5. KALEORID [Suspect]
     Route: 048
     Dates: end: 20130214
  6. AUGMENTIN [Suspect]
     Route: 042
     Dates: start: 20130214, end: 20130221
  7. AMIODARONE [Suspect]
     Route: 048
  8. MICARDIS [Suspect]
     Route: 048
     Dates: end: 20130214
  9. VENOFER [Suspect]
     Route: 042
     Dates: end: 20130214
  10. LOVENOX [Suspect]
     Route: 058
     Dates: start: 20130214, end: 20130221

REACTIONS (6)
  - Haemorrhagic anaemia [Unknown]
  - Epistaxis [Unknown]
  - Dyspnoea [Unknown]
  - Lymphopenia [Recovered/Resolved]
  - Cardiac arrest [Recovered/Resolved]
  - Leukopenia [Recovered/Resolved]
